FAERS Safety Report 18331689 (Version 1)
Quarter: 2020Q3

REPORT INFORMATION
  Report Type: Spontaneous
  Country: US (occurrence: US)
  Receive Date: 20200930
  Receipt Date: 20200930
  Transmission Date: 20201103
  Serious: Yes (Hospitalization)
  Sender: FDA-Public Use
  Company Number: US-SA-2020SA262793

PATIENT

DRUGS (2)
  1. LANTUS [Suspect]
     Active Substance: INSULIN GLARGINE
     Dosage: 12 UNITS DAILY
     Route: 065
     Dates: start: 20200921
  2. LANTUS [Suspect]
     Active Substance: INSULIN GLARGINE
     Indication: TYPE 1 DIABETES MELLITUS
     Dosage: 16 UNITS DAILY
     Route: 065
     Dates: end: 202009

REACTIONS (9)
  - Pancreatic operation [Unknown]
  - Splenectomy [Unknown]
  - Cholecystectomy [Unknown]
  - Memory impairment [Unknown]
  - Gait disturbance [Unknown]
  - Blood glucose increased [Unknown]
  - Balance disorder [Unknown]
  - Chest pain [Recovering/Resolving]
  - Visual impairment [Unknown]

NARRATIVE: CASE EVENT DATE: 201912
